FAERS Safety Report 7868477-7 (Version None)
Quarter: 2011Q4

REPORT INFORMATION
  Report Type: 
  Country: None (occurrence: None)
  Receive Date: 20111028
  Receipt Date: 20101213
  Transmission Date: 20120403
  Serious: No
  Sender: FDA-Public Use
  Company Number: US-AMGEN-USASP2010008880

PATIENT
  Age: 55 Year
  Sex: Male
  Weight: 81.633 kg

DRUGS (8)
  1. EFFEXOR [Concomitant]
     Dosage: 75 MG, UNK
  2. METHOTREXATE [Concomitant]
     Dosage: 2.5 MG, UNK
  3. ATENOLOL [Concomitant]
     Dosage: 50 MG, UNK
  4. FOLIC ACID [Concomitant]
     Dosage: 1 MG, UNK
  5. ENBREL [Suspect]
     Indication: PRODUCT USED FOR UNKNOWN INDICATION
     Dosage: 50 MG, UNK
     Route: 058
  6. ALPRAZOLAM [Concomitant]
     Dosage: .25 MG, UNK
  7. OMEPRAZOLE [Concomitant]
     Dosage: 20 MG, UNK
  8. PLAQUENIL [Concomitant]
     Dosage: 200 MG, UNK

REACTIONS (1)
  - DIARRHOEA [None]
